FAERS Safety Report 5814197-X (Version None)
Quarter: 2008Q3

REPORT INFORMATION
  Report Type: 
  Country: None (occurrence: None)
  Receive Date: 20080717
  Receipt Date: 20080702
  Transmission Date: 20090109
  Serious: Yes (Other)
  Sender: FDA-Public Use
  Company Number: FR-GENENTECH-263892

PATIENT
  Sex: Female

DRUGS (1)
  1. XOLAIR [Suspect]
     Indication: ASTHMA
     Dosage: 150 MG, UNK
     Dates: start: 20080301

REACTIONS (2)
  - SKIN LESION [None]
  - SYSTEMIC LUPUS ERYTHEMATOSUS [None]
